FAERS Safety Report 5740250-5 (Version None)
Quarter: 2008Q2

REPORT INFORMATION
  Report Type: 
  Country: None (occurrence: None)
  Receive Date: 20080516
  Receipt Date: 20080506
  Transmission Date: 20081010
  Serious: Yes (Hospitalization, Other)
  Sender: FDA-Public Use
  Company Number: US-JNJFOC-20080501445

PATIENT
  Sex: Female
  Weight: 70.31 kg

DRUGS (5)
  1. DURAGESIC-100 [Suspect]
     Indication: PAIN
     Route: 062
  2. PROCARDIA XL [Concomitant]
     Indication: BLOOD PRESSURE
     Route: 048
  3. LISINOPRIL [Concomitant]
     Indication: BLOOD PRESSURE
     Route: 048
  4. TRIAMTERENE AND HYDROCHLOROTHIAZIDE [Concomitant]
     Indication: BLOOD PRESSURE
     Dosage: 37.5MG-25MG
     Route: 048
  5. FOSAMAX [Concomitant]
     Indication: BONE DISORDER
     Route: 048

REACTIONS (10)
  - DRUG DEPENDENCE [None]
  - FALL [None]
  - HIP FRACTURE [None]
  - INAPPROPRIATE SCHEDULE OF DRUG ADMINISTRATION [None]
  - INCORRECT DRUG ADMINISTRATION DURATION [None]
  - INCREASED APPETITE [None]
  - OSTEOPENIA [None]
  - PAIN [None]
  - RESTLESSNESS [None]
  - STRESS [None]
